FAERS Safety Report 6568804-7 (Version None)
Quarter: 2010Q1

REPORT INFORMATION
  Report Type: 
  Country: None (occurrence: None)
  Receive Date: 20100203
  Receipt Date: 20090423
  Transmission Date: 20100710
  Serious: Yes (Other)
  Sender: FDA-Public Use
  Company Number: US-ABBOTT-09P-163-0558529-00

PATIENT
  Sex: Female
  Weight: 120 kg

DRUGS (16)
  1. TRICOR [Suspect]
     Indication: BLOOD CHOLESTEROL INCREASED
     Dates: start: 20081201
  2. TRICOR [Suspect]
     Indication: BLOOD TRIGLYCERIDES INCREASED
  3. REBIF [Suspect]
     Indication: MULTIPLE SCLEROSIS
     Route: 058
     Dates: start: 20080923
  4. CYMBALTA [Concomitant]
     Indication: DEPRESSION
     Dates: start: 20081201
  5. SYNTHROID [Concomitant]
     Indication: HYPOTHYROIDISM
  6. TRIAMTERENE AND HYDROCHLOROTHIAZIDE [Concomitant]
     Indication: HYPERTENSION
  7. ESTRADIOL TRANSDERMAL [Concomitant]
     Indication: DRUG USE FOR UNKNOWN INDICATION
     Dosage: PATCH
  8. BACLOFEN [Concomitant]
     Indication: DRUG USE FOR UNKNOWN INDICATION
  9. REGLAN [Concomitant]
     Indication: DRUG USE FOR UNKNOWN INDICATION
  10. TOPAMAX [Concomitant]
     Indication: DRUG USE FOR UNKNOWN INDICATION
  11. REQUIP [Concomitant]
     Indication: DRUG USE FOR UNKNOWN INDICATION
  12. TRAZODONE [Concomitant]
     Indication: DRUG USE FOR UNKNOWN INDICATION
  13. GEODON [Concomitant]
     Indication: DEPRESSION
  14. VICODIN [Concomitant]
     Indication: DRUG USE FOR UNKNOWN INDICATION
  15. ATIVAN [Concomitant]
     Indication: DRUG USE FOR UNKNOWN INDICATION
  16. LIDODERM [Concomitant]
     Indication: DRUG USE FOR UNKNOWN INDICATION
     Dosage: PATCH

REACTIONS (3)
  - DIABETES MELLITUS [None]
  - HEPATIC STEATOSIS [None]
  - LIVER DISORDER [None]
